FAERS Safety Report 16682747 (Version 1)
Quarter: 2019Q3

REPORT INFORMATION
  Report Type: Spontaneous
  Country: US (occurrence: US)
  Receive Date: 20190808
  Receipt Date: 20190808
  Transmission Date: 20191004
  Serious: No
  Sender: FDA-Public Use
  Company Number: US-PFIZER INC-2019312762

PATIENT
  Age: 81 Year
  Sex: Female
  Weight: 72.57 kg

DRUGS (1)
  1. CHANTIX [Suspect]
     Active Substance: VARENICLINE TARTRATE
     Indication: LUNG NEOPLASM MALIGNANT
     Dosage: 1 MG, UNK
     Dates: start: 20190621

REACTIONS (5)
  - Nightmare [Recovered/Resolved]
  - Off label use [Unknown]
  - Hallucination, visual [Recovered/Resolved]
  - Product use in unapproved indication [Unknown]
  - Insomnia [Recovered/Resolved]

NARRATIVE: CASE EVENT DATE: 20190621
